FAERS Safety Report 21677030 (Version 2)
Quarter: 2023Q2

REPORT INFORMATION
  Report Type: Report from Study
  Country: BR (occurrence: BR)
  Receive Date: 20221203
  Receipt Date: 20230613
  Transmission Date: 20230722
  Serious: Yes (Other)
  Sender: FDA-Public Use
  Company Number: BR-CELLTRION INC.-2022BR020197

PATIENT

DRUGS (6)
  1. INFLIXIMAB [Suspect]
     Active Substance: INFLIXIMAB
     Indication: Colitis ulcerative
     Dosage: 5 MG/KILO (4 AMPOULES (100 MG EACH) EVERY 8 WEEKS.)
     Route: 042
     Dates: start: 20221027
  2. MESALAMINE [Concomitant]
     Active Substance: MESALAMINE
     Indication: Colitis
     Dosage: 2 PILLS A DAY
     Route: 048
     Dates: start: 2012
  3. LEVOTHYROXINE [Concomitant]
     Active Substance: LEVOTHYROXINE
     Indication: Hypothyroidism
     Dosage: 1 PILL A DAY
     Route: 048
     Dates: start: 2000
  4. TIMOLOL MALEATE [Concomitant]
     Active Substance: TIMOLOL MALEATE
     Indication: Glaucoma
     Dosage: 2 DROPS PER DAY
     Dates: start: 2016
  5. LATANOPROST [Concomitant]
     Active Substance: LATANOPROST
     Indication: Glaucoma
     Dosage: 1 DROPS PER DAY
     Dates: start: 2016
  6. IMATINIB MESYLATE [Concomitant]
     Active Substance: IMATINIB MESYLATE
     Indication: Immunochemotherapy
     Dosage: 1 TABLET A DAY

REACTIONS (6)
  - Rectal haemorrhage [Recovered/Resolved]
  - Small intestine carcinoma [Unknown]
  - Frequent bowel movements [Recovered/Resolved]
  - Gastrointestinal inflammation [Recovered/Resolved]
  - Weight decreased [Recovered/Resolved]
  - Abdominal pain [Recovered/Resolved]
